FAERS Safety Report 21103902 (Version 1)
Quarter: 2022Q3

REPORT INFORMATION
  Report Type: Spontaneous
  Country: US (occurrence: None)
  Receive Date: 20220719
  Receipt Date: 20220719
  Transmission Date: 20221027
  Serious: No
  Sender: FDA-Public Use
  Company Number: None

PATIENT
  Sex: Female

DRUGS (1)
  1. VUMERITY [Suspect]
     Active Substance: DIROXIMEL FUMARATE
     Indication: Multiple sclerosis
     Dosage: FREQUENCY : TWICE A DAY;?
     Route: 048
     Dates: start: 20210708

REACTIONS (7)
  - Therapy cessation [None]
  - Multiple sclerosis relapse [None]
  - Gait disturbance [None]
  - Vertigo [None]
  - Malaise [None]
  - Magnetic resonance imaging abnormal [None]
  - Brain stem syndrome [None]
